FAERS Safety Report 10535563 (Version 2)
Quarter: 2014Q4

REPORT INFORMATION
  Report Type: Spontaneous
  Country: US (occurrence: US)
  Receive Date: 20141022
  Receipt Date: 20141022
  Transmission Date: 20150529
  Serious: No
  Sender: FDA-Public Use
  Company Number: US-RECKITT BENCKISER PHARMACEUTICAL, INC-RB-57152-2013

PATIENT

DRUGS (3)
  1. SUBOXONE [Suspect]
     Active Substance: BUPRENORPHINE HYDROCHLORIDE\NALOXONE HYDROCHLORIDE
     Indication: PAIN
     Dosage: SUBOXONE FILM; CUTTING INTO VARIOUS DOSES, TAKING OFF AND ON
     Route: 060
     Dates: start: 2013
  2. PRENATAL VITAMINS [Concomitant]
     Active Substance: VITAMINS
     Indication: PREGNANCY
     Dosage: DOSING DETAILS UNKNOWN; DAILY
     Route: 048
  3. NICOTINE. [Concomitant]
     Active Substance: NICOTINE
     Indication: NICOTINE DEPENDENCE
     Dosage: 2 CIGARETTES DAILY
     Route: 055

REACTIONS (4)
  - Wrong technique in drug usage process [Recovered/Resolved]
  - Off label use [Not Recovered/Not Resolved]
  - Maternal exposure during pregnancy [Recovered/Resolved]
  - Substance abuse [Recovered/Resolved]

NARRATIVE: CASE EVENT DATE: 2013
